FAERS Safety Report 16622812 (Version 1)
Quarter: 2019Q3

REPORT INFORMATION
  Report Type: Spontaneous
  Country: MY (occurrence: MY)
  Receive Date: 20190724
  Receipt Date: 20190724
  Transmission Date: 20191004
  Serious: Yes (Other)
  Sender: FDA-Public Use
  Company Number: PHHY2019MY168225

PATIENT
  Age: 33 Year
  Sex: Male

DRUGS (3)
  1. IMATINIB. [Suspect]
     Active Substance: IMATINIB MESYLATE
     Indication: CHRONIC MYELOID LEUKAEMIA
     Dosage: UNK
     Route: 065
  2. CYTARABINE. [Suspect]
     Active Substance: CYTARABINE
     Indication: CHRONIC MYELOID LEUKAEMIA
     Dosage: UNK
     Route: 065
     Dates: start: 201606
  3. DAUNORUBICIN [Suspect]
     Active Substance: DAUNORUBICIN
     Indication: CHRONIC MYELOID LEUKAEMIA
     Dosage: UNK
     Route: 065
     Dates: start: 201606

REACTIONS (10)
  - Central nervous system lesion [Unknown]
  - Haemoglobin decreased [Unknown]
  - Platelet count decreased [Unknown]
  - Brain abscess [Unknown]
  - Toxoplasmosis [Unknown]
  - Fungal infection [Unknown]
  - Confusional state [Unknown]
  - Neutropenic sepsis [Unknown]
  - White blood cell count increased [Unknown]
  - Cytopenia [Unknown]
